FAERS Safety Report 5493159-9 (Version None)
Quarter: 2007Q4

REPORT INFORMATION
  Report Type: 
  Country: None (occurrence: None)
  Receive Date: 20071023
  Receipt Date: 20071023
  Transmission Date: 20080405
  Serious: Yes (Other)
  Sender: FDA-Public Use
  Company Number: A0689128A

PATIENT
  Age: 71 Year
  Sex: Female

DRUGS (6)
  1. ALLI [Suspect]
  2. ZETIA [Concomitant]
  3. LORATADINE [Concomitant]
  4. ATROVENT [Concomitant]
  5. SPIRIVA [Concomitant]
  6. ADVAIR DISKUS 100/50 [Concomitant]

REACTIONS (1)
  - LIVER FUNCTION TEST ABNORMAL [None]
